FAERS Safety Report 8265418-8 (Version None)
Quarter: 2012Q2

REPORT INFORMATION
  Report Type: 
  Country: None (occurrence: None)
  Receive Date: 20120406
  Receipt Date: 20120330
  Transmission Date: 20120825
  Serious: Yes (Other)
  Sender: FDA-Public Use
  Company Number: US-PFIZER INC-2012082767

PATIENT
  Sex: Female

DRUGS (4)
  1. LIPITOR [Suspect]
     Dosage: 40 MG, (1 PO QHS)
     Route: 048
  2. METOPROLOL [Concomitant]
     Dosage: (25 BID)
  3. ASPIRIN [Concomitant]
     Dosage: 81 MG, 1X/DAY
  4. ALTACE [Concomitant]
     Dosage: 5 MG, 1X/DAY

REACTIONS (2)
  - IMPAIRED WORK ABILITY [None]
  - CORONARY ARTERY DISEASE [None]
